FAERS Safety Report 9812562 (Version 1)
Quarter: 2014Q1

REPORT INFORMATION
  Report Type: Spontaneous
  Country: US (occurrence: US)
  Receive Date: 20140113
  Receipt Date: 20140113
  Transmission Date: 20141002
  Serious: Yes (Other)
  Sender: FDA-Public Use
  Company Number: US-ASTRAZENECA-2014SE01339

PATIENT
  Age: 68 Year
  Sex: Female
  Weight: 70.3 kg

DRUGS (1)
  1. ZOMIG [Suspect]
     Indication: MIGRAINE
     Route: 048
     Dates: start: 2005

REACTIONS (7)
  - Aphasia [Unknown]
  - Migraine with aura [Unknown]
  - Blood potassium decreased [Unknown]
  - Migraine [Unknown]
  - Migraine [Unknown]
  - Expired drug administered [Unknown]
  - Intentional drug misuse [Unknown]
